FAERS Safety Report 8080642-5 (Version None)
Quarter: 2012Q1

REPORT INFORMATION
  Report Type: 
  Country: None (occurrence: None)
  Receive Date: 20120130
  Receipt Date: 20120124
  Transmission Date: 20120608
  Serious: Yes (Hospitalization)
  Sender: FDA-Public Use
  Company Number: FR-BAYER-2012-008148

PATIENT
  Age: 36 Year
  Sex: Female

DRUGS (1)
  1. ESTRADIOL VALERATE/DIENOGEST [Suspect]
     Indication: ORAL CONTRACEPTION
     Dosage: 1 DF, QD
     Route: 048
     Dates: start: 20111115, end: 20111202

REACTIONS (7)
  - PRURITUS [None]
  - ABDOMINAL PAIN UPPER [None]
  - FACE OEDEMA [None]
  - TRANSAMINASES INCREASED [None]
  - BLOOD BILIRUBIN INCREASED [None]
  - VOMITING [None]
  - BLOOD ALKALINE PHOSPHATASE INCREASED [None]
